FAERS Safety Report 7468188-6 (Version None)
Quarter: 2011Q2

REPORT INFORMATION
  Report Type: 
  Country: None (occurrence: None)
  Receive Date: 20110509
  Receipt Date: 20110427
  Transmission Date: 20111010
  Serious: Yes (Hospitalization, Other)
  Sender: FDA-Public Use
  Company Number: CA-PFIZER INC-2011096779

PATIENT
  Sex: Male

DRUGS (2)
  1. SITAGLIPTIN [Interacting]
     Indication: DIABETES MELLITUS
     Dosage: UNK
  2. ZIPRASIDONE HCL [Suspect]
     Dosage: UNK

REACTIONS (3)
  - DIABETES MELLITUS [None]
  - SEDATION [None]
  - DRUG INTERACTION [None]
